FAERS Safety Report 5501176-5 (Version None)
Quarter: 2007Q4

REPORT INFORMATION
  Report Type: 
  Country: None (occurrence: None)
  Receive Date: 20071029
  Receipt Date: 20071023
  Transmission Date: 20080405
  Serious: Yes (Life-Threatening, Other)
  Sender: FDA-Public Use
  Company Number: ES-BOEHRINGER INGELHEIM PHARMACEUTICALS, INC.-2007-ES-00151ES

PATIENT
  Age: 68 Year
  Sex: Male

DRUGS (24)
  1. ATROVENT MONODOSIS 500 MCG/2ML [Suspect]
     Indication: LARYNGEAL NEOPLASM
     Route: 055
     Dates: start: 20070824
  2. ATROVENT MONODOSIS 500 MCG/2ML [Suspect]
     Indication: PHARYNGEAL NEOPLASM
  3. CLEXANE [Suspect]
     Indication: LARYNGEAL NEOPLASM
     Route: 058
     Dates: start: 20070824
  4. CLEXANE [Suspect]
     Indication: PHARYNGEAL NEOPLASM
  5. BISOPROLOL FUMARATE [Suspect]
     Indication: LARYNGEAL NEOPLASM
     Route: 048
     Dates: start: 20070823
  6. BISOPROLOL FUMARATE [Suspect]
     Indication: PHARYNGEAL NEOPLASM
  7. VENTOLIN [Suspect]
     Indication: LARYNGEAL NEOPLASM
     Route: 055
     Dates: start: 20070824, end: 20070824
  8. VENTOLIN [Suspect]
     Indication: PHARYNGEAL NEOPLASM
  9. CIPROFLOXACINO [Suspect]
     Indication: LARYNGEAL NEOPLASM
     Route: 042
     Dates: start: 20070819
  10. CIPROFLOXACINO [Suspect]
     Indication: PHARYNGEAL NEOPLASM
  11. RENITEC [Suspect]
     Indication: LARYNGEAL NEOPLASM
     Route: 048
     Dates: start: 20070819
  12. RENITEC [Suspect]
     Indication: PHARYNGEAL NEOPLASM
  13. TERMALGIN [Concomitant]
     Indication: LARYNGEAL NEOPLASM
     Route: 048
     Dates: start: 20070823
  14. TERMALGIN [Concomitant]
     Indication: PHARYNGEAL NEOPLASM
  15. FORTAM [Concomitant]
     Indication: LARYNGEAL NEOPLASM
     Route: 042
     Dates: start: 20070819
  16. FORTAM [Concomitant]
     Indication: PHARYNGEAL NEOPLASM
  17. PRIMPERAN [Concomitant]
     Indication: LARYNGEAL NEOPLASM
     Dates: start: 20070816
  18. PRIMPERAN [Concomitant]
     Indication: PHARYNGEAL NEOPLASM
  19. FLUMIL [Concomitant]
     Indication: LARYNGEAL NEOPLASM
     Route: 048
     Dates: start: 20070818
  20. FLUMIL [Concomitant]
     Indication: PHARYNGEAL NEOPLASM
  21. LORAZEPAM [Concomitant]
     Indication: LARYNGEAL NEOPLASM
     Route: 048
     Dates: start: 20070810
  22. LORAZEPAM [Concomitant]
     Indication: PHARYNGEAL NEOPLASM
  23. OMEPRAZOLE [Concomitant]
     Indication: LARYNGEAL NEOPLASM
     Route: 048
     Dates: start: 20070823
  24. OMEPRAZOLE [Concomitant]
     Indication: PHARYNGEAL NEOPLASM

REACTIONS (1)
  - ATRIAL FIBRILLATION [None]
